FAERS Safety Report 22061078 (Version 3)
Quarter: 2023Q1

REPORT INFORMATION
  Report Type: Report from Study
  Country: US (occurrence: US)
  Receive Date: 20230303
  Receipt Date: 20230315
  Transmission Date: 20230418
  Serious: Yes (Life-Threatening, Hospitalization)
  Sender: FDA-Public Use
  Company Number: US-PFIZER INC-PV202300037030

PATIENT
  Age: 51 Year
  Sex: Female
  Weight: 54.6 kg

DRUGS (7)
  1. INOTUZUMAB OZOGAMICIN [Suspect]
     Active Substance: INOTUZUMAB OZOGAMICIN
     Indication: Chronic myeloid leukaemia
     Dosage: 0.6 MG/M2, ONCE
     Route: 042
     Dates: start: 20230216, end: 20230216
  2. SPRYCEL [Suspect]
     Active Substance: DASATINIB
  3. SODIUM CHLORIDE [Concomitant]
     Active Substance: SODIUM CHLORIDE
     Dosage: UNK, ONCE
     Dates: start: 20230216, end: 20230216
  4. TYLENOL [Concomitant]
     Active Substance: ACETAMINOPHEN
     Dosage: UNK, ONCE
     Dates: start: 20230216, end: 20230216
  5. SOLU-MEDROL [Concomitant]
     Active Substance: METHYLPREDNISOLONE SODIUM SUCCINATE
     Dosage: UNK, ONCE
     Dates: start: 20230216, end: 20230216
  6. SOLU-MEDROL [Concomitant]
     Active Substance: METHYLPREDNISOLONE SODIUM SUCCINATE
     Dosage: 30 MG, 2X/DAY
  7. BENADRYL [Concomitant]
     Active Substance: DIPHENHYDRAMINE HYDROCHLORIDE
     Dosage: UNK, ONCE
     Dates: start: 20230216, end: 20230216

REACTIONS (4)
  - Venoocclusive liver disease [Unknown]
  - Cholecystitis acute [Not Recovered/Not Resolved]
  - Thrombocytopenia [Unknown]
  - Hypertransaminasaemia [Unknown]

NARRATIVE: CASE EVENT DATE: 20230224
